FAERS Safety Report 14567286 (Version 1)
Quarter: 2018Q1

REPORT INFORMATION
  Report Type: Spontaneous
  Country: US (occurrence: US)
  Receive Date: 20180223
  Receipt Date: 20180223
  Transmission Date: 20180509
  Serious: Yes (Other)
  Sender: FDA-Public Use
  Company Number: US-AUROBINDO-AUR-APL-2018-008822

PATIENT

DRUGS (3)
  1. PREDNISONE. [Suspect]
     Active Substance: PREDNISONE
     Indication: HYPERSENSITIVITY VASCULITIS
     Dosage: DOSE OF PREDNISONE WAS INCREASED
     Route: 065
  2. PREDNISONE. [Suspect]
     Active Substance: PREDNISONE
     Indication: SYSTEMIC LUPUS ERYTHEMATOSUS
  3. PREDNISONE. [Suspect]
     Active Substance: PREDNISONE
     Indication: VASCULITIS

REACTIONS (8)
  - Headache [Recovering/Resolving]
  - Tinnitus [Recovering/Resolving]
  - Papilloedema [Recovering/Resolving]
  - Blindness transient [Recovered/Resolved]
  - Intracranial pressure increased [Unknown]
  - Osteoporosis [Unknown]
  - Weight increased [Unknown]
  - Dizziness [Unknown]
